FAERS Safety Report 9825826 (Version 2)
Quarter: 2014Q1

REPORT INFORMATION
  Report Type: Spontaneous
  Country: SE (occurrence: SE)
  Receive Date: 20140117
  Receipt Date: 20140211
  Transmission Date: 20141002
  Serious: Yes (Death, Hospitalization)
  Sender: FDA-Public Use
  Company Number: SE-ACTELION-A-CH2014-93623

PATIENT
  Age: 68 Year
  Sex: Female

DRUGS (2)
  1. TRACLEER [Suspect]
     Indication: PULMONARY HYPERTENSION
     Dosage: 125 MG, BID
     Route: 048
     Dates: start: 20110715, end: 201310
  2. TRACLEER [Suspect]
     Dosage: 65.2 MG, BID
     Route: 048
     Dates: start: 20110615, end: 20110714

REACTIONS (1)
  - Cerebrovascular accident [Fatal]
